FAERS Safety Report 12270957 (Version 20)
Quarter: 2016Q4

REPORT INFORMATION
  Report Type: Report from Study
  Country: MX (occurrence: MX)
  Receive Date: 20160415
  Receipt Date: 20161116
  Transmission Date: 20170207
  Serious: Yes (Hospitalization, Disabling, Other)
  Sender: FDA-Public Use
  Company Number: MX-BAYER-2016-067398

PATIENT
  Age: 79 Year
  Sex: Female
  Weight: 53 kg

DRUGS (5)
  1. NEXAVAR [Suspect]
     Active Substance: SORAFENIB
     Indication: HEPATOCELLULAR CARCINOMA
     Dosage: 400 MG, BID
     Route: 048
     Dates: end: 20160902
  2. NEXAVAR [Suspect]
     Active Substance: SORAFENIB
     Indication: HEPATOCELLULAR CARCINOMA
     Dosage: 200 MG, TID
     Route: 048
  3. NEXAVAR [Suspect]
     Active Substance: SORAFENIB
     Indication: HEPATOCELLULAR CARCINOMA
     Dosage: 200 MG, TID
     Route: 048
  4. NEXAVAR [Suspect]
     Active Substance: SORAFENIB
     Indication: HEPATOCELLULAR CARCINOMA
     Dosage: 400 MG, BID
     Route: 048
     Dates: start: 20151201
  5. NEXAVAR [Suspect]
     Active Substance: SORAFENIB
     Indication: HEPATOCELLULAR CARCINOMA
     Dosage: 400 MG, BID
     Route: 048
     Dates: start: 2016

REACTIONS (94)
  - Fall [None]
  - Peripheral swelling [Not Recovered/Not Resolved]
  - Food intolerance [Recovering/Resolving]
  - Bone swelling [Not Recovered/Not Resolved]
  - Feeling of despair [Not Recovered/Not Resolved]
  - Diarrhoea [Recovering/Resolving]
  - Limb discomfort [Not Recovered/Not Resolved]
  - Pruritus [Recovered/Resolved]
  - Abdominal pain upper [Recovered/Resolved]
  - Mouth ulceration [Not Recovered/Not Resolved]
  - Myalgia [Not Recovered/Not Resolved]
  - Syncope [Recovering/Resolving]
  - Neoplasm [Recovering/Resolving]
  - Buttock injury [Not Recovered/Not Resolved]
  - Limb mass [Not Recovered/Not Resolved]
  - Limb mass [Recovered/Resolved]
  - Bone disorder [Not Recovered/Not Resolved]
  - Weight increased [Not Recovered/Not Resolved]
  - Peripheral swelling [Not Recovered/Not Resolved]
  - Extravasation blood [Not Recovered/Not Resolved]
  - Abdominal pain upper [Recovered/Resolved]
  - Burning sensation [Not Recovered/Not Resolved]
  - Rash generalised [Recovered/Resolved]
  - Anaemia [Not Recovered/Not Resolved]
  - Mobility decreased [Not Recovered/Not Resolved]
  - Tremor [Recovering/Resolving]
  - Multiple fractures [None]
  - Blister [Recovering/Resolving]
  - Renal disorder [Recovering/Resolving]
  - Decreased appetite [Recovering/Resolving]
  - Vomiting [Not Recovered/Not Resolved]
  - Depressed mood [Not Recovered/Not Resolved]
  - Diarrhoea [Not Recovered/Not Resolved]
  - Limb discomfort [Not Recovered/Not Resolved]
  - Hyperkeratosis [None]
  - Renal pain [Recovering/Resolving]
  - Abdominal pain upper [Recovering/Resolving]
  - Dehydration [Not Recovered/Not Resolved]
  - Alopecia [Not Recovered/Not Resolved]
  - Joint injury [Not Recovered/Not Resolved]
  - Chikungunya virus infection [Recovered/Resolved]
  - Gait disturbance [Recovered/Resolved]
  - Varicose vein ruptured [None]
  - Weight decreased [Not Recovered/Not Resolved]
  - Gait disturbance [Not Recovered/Not Resolved]
  - Dysuria [None]
  - Fatigue [Unknown]
  - Skin exfoliation [Not Recovered/Not Resolved]
  - Dry skin [Not Recovered/Not Resolved]
  - Skin mass [Not Recovered/Not Resolved]
  - Abdominal distension [Recovered/Resolved]
  - Feeling abnormal [Recovering/Resolving]
  - Drug dose omission [None]
  - Headache [Not Recovered/Not Resolved]
  - Hyperkeratosis [Recovering/Resolving]
  - Pain in extremity [Recovered/Resolved]
  - Oropharyngeal pain [Not Recovered/Not Resolved]
  - Fall [Recovered/Resolved]
  - Mass [Not Recovered/Not Resolved]
  - Varicose vein ruptured [None]
  - Peripheral swelling [Recovered/Resolved]
  - Dysuria [Not Recovered/Not Resolved]
  - Blood glucose increased [Recovering/Resolving]
  - Diarrhoea [Recovered/Resolved]
  - Erythema [Not Recovered/Not Resolved]
  - Depression [Recovering/Resolving]
  - Muscle spasms [Not Recovered/Not Resolved]
  - Weight decreased [Not Recovered/Not Resolved]
  - Diarrhoea [Recovered/Resolved]
  - Depressed mood [Not Recovered/Not Resolved]
  - Gait disturbance [Not Recovered/Not Resolved]
  - Amnesia [Not Recovered/Not Resolved]
  - Memory impairment [Not Recovered/Not Resolved]
  - Confusional state [Not Recovered/Not Resolved]
  - Soliloquy [Recovering/Resolving]
  - Hypophagia [Recovering/Resolving]
  - Bone pain [Not Recovered/Not Resolved]
  - Hypertension [Unknown]
  - Pain in extremity [Not Recovered/Not Resolved]
  - Depressed mood [Not Recovered/Not Resolved]
  - Pain in extremity [Not Recovered/Not Resolved]
  - Adverse event [Not Recovered/Not Resolved]
  - Inflammation [Not Recovered/Not Resolved]
  - Palmar-plantar erythrodysaesthesia syndrome [Not Recovered/Not Resolved]
  - Pyrexia [Not Recovered/Not Resolved]
  - Platelet count increased [Not Recovered/Not Resolved]
  - Ligament sprain [Not Recovered/Not Resolved]
  - Vascular pain [Not Recovered/Not Resolved]
  - Mobility decreased [Not Recovered/Not Resolved]
  - Gait disturbance [Recovering/Resolving]
  - Hepatic pain [Not Recovered/Not Resolved]
  - Burning sensation [Not Recovered/Not Resolved]
  - Pyrexia [Recovered/Resolved]
  - Poor quality sleep [Not Recovered/Not Resolved]

NARRATIVE: CASE EVENT DATE: 201512
